FAERS Safety Report 22972487 (Version 2)
Quarter: 2023Q4

REPORT INFORMATION
  Report Type: Report from Study
  Country: US (occurrence: US)
  Receive Date: 20230922
  Receipt Date: 20231005
  Transmission Date: 20240110
  Serious: Yes (Hospitalization)
  Sender: FDA-Public Use
  Company Number: US-PFIZER INC-202300248717

PATIENT
  Age: 72 Year
  Sex: Female
  Weight: 92.063 kg

DRUGS (1)
  1. IBRANCE [Suspect]
     Active Substance: PALBOCICLIB
     Indication: Breast cancer
     Dosage: ONCE DAILY FOR 21 DAYS THEN 7 DAYS OFF
     Dates: start: 2019

REACTIONS (9)
  - Pollakiuria [Unknown]
  - Dehydration [Unknown]
  - Fatigue [Unknown]
  - Decreased appetite [Unknown]
  - Arthralgia [Unknown]
  - Limb discomfort [Unknown]
  - Somnolence [Unknown]
  - Depression [Unknown]
  - Thirst [Unknown]

NARRATIVE: CASE EVENT DATE: 20230101
